FAERS Safety Report 7266610-1 (Version None)
Quarter: 2011Q1

REPORT INFORMATION
  Report Type: 
  Country: None (occurrence: None)
  Receive Date: 20110131
  Receipt Date: 20110120
  Transmission Date: 20110831
  Serious: Yes (Hospitalization)
  Sender: FDA-Public Use
  Company Number: NL-GENENTECH-308783

PATIENT
  Sex: Male
  Weight: 83 kg

DRUGS (32)
  1. RITUXIMAB [Suspect]
     Dosage: 750 MG, UNK
     Route: 042
     Dates: start: 20101221
  2. PREDNISONE [Suspect]
     Indication: DIFFUSE LARGE B-CELL LYMPHOMA
     Dosage: 100 MG, UNK
     Route: 048
     Dates: start: 20100927
  3. PREDNISONE [Suspect]
     Dosage: 100 MG, UNK
     Route: 048
     Dates: start: 20100110
  4. DOXORUBICIN [Suspect]
     Indication: DIFFUSE LARGE B-CELL LYMPHOMA
     Dosage: 110 MG, UNK
     Route: 042
     Dates: start: 20100927
  5. NEUPOGEN [Suspect]
     Dosage: 6 MG, UNK
     Route: 058
     Dates: start: 20110111
  6. CYCLOPHOSPHAMIDE [Suspect]
     Indication: DIFFUSE LARGE B-CELL LYMPHOMA
     Dosage: 1650 MG, UNK
     Route: 042
     Dates: start: 20100927
  7. CYCLOPHOSPHAMIDE [Suspect]
     Dosage: 1575 MG, UNK
     Route: 042
     Dates: start: 20101011
  8. VINCRISTINE [Suspect]
     Indication: DIFFUSE LARGE B-CELL LYMPHOMA
     Dosage: 2 MG, UNK
     Route: 042
     Dates: start: 20100927
  9. NEUPOGEN [Suspect]
     Dosage: 6 MG, UNK
     Route: 058
     Dates: start: 20101117
  10. PREDNISONE [Suspect]
     Dosage: 10 MG, UNK
     Route: 048
     Dates: start: 20101116
  11. DOXORUBICIN [Suspect]
     Dosage: 105 MG, UNK
     Route: 042
     Dates: start: 20101116
  12. DOXORUBICIN [Suspect]
     Dosage: 79 MG, UNK
     Route: 042
     Dates: start: 20101221
  13. PREDNISONE [Suspect]
     Dosage: 100 MG, UNK
     Route: 048
     Dates: start: 20101130
  14. PREDNISONE [Suspect]
     Dosage: 100 MG, UNK
     Route: 048
     Dates: start: 20101221
  15. CYCLOPHOSPHAMIDE [Suspect]
     Dosage: 1575 MG, UNK
     Route: 042
     Dates: start: 20101116
  16. DOXORUBICIN [Suspect]
     Dosage: 105 MG, UNK
     Route: 042
     Dates: start: 20101011
  17. DOXORUBICIN [Suspect]
     Dosage: 79 MG, UNK
     Route: 042
     Dates: start: 20110110
  18. RITUXIMAB [Suspect]
     Dosage: 750 MG, UNK
     Route: 042
     Dates: start: 20101130
  19. CYCLOPHOSPHAMIDE [Suspect]
     Dosage: 1180 MG, UNK
     Route: 042
     Dates: start: 20101221
  20. VINCRISTINE [Suspect]
     Dosage: 2 MG, UNK
     Route: 042
     Dates: start: 20101116
  21. CYCLOPHOSPHAMIDE [Suspect]
     Dosage: 1500 MG, UNK
     Route: 042
     Dates: start: 20101130
  22. DOXORUBICIN [Suspect]
     Dosage: 100 MG, UNK
     Route: 042
     Dates: start: 20101130
  23. VINCRISTINE [Suspect]
     Dosage: 2 MG, UNK
     Route: 042
     Dates: start: 20101221
  24. NEUPOGEN [Suspect]
     Dosage: 6 MG, UNK
     Route: 058
     Dates: start: 20101201
  25. RITUXIMAB [Suspect]
     Indication: DIFFUSE LARGE B-CELL LYMPHOMA
     Dosage: 750 MG, UNK
     Route: 042
     Dates: start: 20100927
  26. VINCRISTINE [Suspect]
     Dosage: 2 MG, UNK
     Route: 042
     Dates: start: 20101130
  27. RITUXIMAB [Suspect]
     Dosage: 750 MG, UNK
     Route: 042
     Dates: start: 20101116
  28. RITUXIMAB [Suspect]
     Dosage: 750 MG, UNK
     Route: 042
     Dates: start: 20100110
  29. CYCLOPHOSPHAMIDE [Suspect]
     Dosage: 1180 MG, UNK
     Dates: start: 20110110
  30. VINCRISTINE [Suspect]
     Dosage: 2 MG, UNK
     Route: 042
     Dates: start: 20110111
  31. NEUPOGEN [Suspect]
     Indication: DIFFUSE LARGE B-CELL LYMPHOMA
     Dosage: 6 MG, UNK
     Route: 058
     Dates: start: 20100928
  32. NEUPOGEN [Suspect]
     Dosage: 6 MG, UNK
     Route: 058
     Dates: start: 20101221

REACTIONS (5)
  - FEBRILE NEUTROPENIA [None]
  - INFECTION [None]
  - ABDOMINAL PAIN UPPER [None]
  - PLEURAL EFFUSION [None]
  - ABNORMAL FAECES [None]
